FAERS Safety Report 25463719 (Version 1)
Quarter: 2025Q2

REPORT INFORMATION
  Report Type: Spontaneous
  Country: US (occurrence: US)
  Receive Date: 20250621
  Receipt Date: 20250621
  Transmission Date: 20250716
  Serious: No
  Sender: AUROBINDO
  Company Number: US-AUROBINDO-AUR-APL-2024-060936

PATIENT
  Sex: Female
  Weight: 56.699 kg

DRUGS (1)
  1. AZELASTINE HYDROCHLORIDE [Suspect]
     Active Substance: AZELASTINE HYDROCHLORIDE
     Indication: Nasopharyngitis
     Dosage: TWO TIMES A DAY
     Route: 065

REACTIONS (2)
  - Paraesthesia [Unknown]
  - Product delivery mechanism issue [Unknown]
